FAERS Safety Report 8938216 (Version 2)
Quarter: 2012Q4

REPORT INFORMATION
  Report Type: 
  Country: FR (occurrence: FR)
  Receive Date: 20121203
  Receipt Date: 20121219
  Transmission Date: 20130627
  Serious: Yes (Death, Other)
  Sender: FDA-Public Use
  Company Number: PHHY2012FR110091

PATIENT
  Age: 85 Year
  Sex: Female

DRUGS (20)
  1. ACLASTA [Suspect]
     Indication: OSTEOPOROSIS
     Dosage: UNK UKN, UNK
     Route: 042
     Dates: start: 20120608, end: 20120608
  2. PREDNISOLONE [Concomitant]
     Indication: RHEUMATOID ARTHRITIS
     Dosage: 6 mg, UNK
  3. BILASTINE [Concomitant]
     Dosage: 20 mg, UNK
  4. OROCAL VITAMIN D [Concomitant]
  5. TARDYFERON [Concomitant]
     Dosage: UNK UKN, UNK
  6. PARIET [Concomitant]
     Dosage: UNK UKN, UNK
  7. TAHOR [Concomitant]
     Dosage: UNK UKN, UNK
  8. DUROGESIC [Concomitant]
     Dosage: 12.5 mcg, Every 3 days
  9. OXYNORM [Concomitant]
     Dosage: 5 mg, UNK
  10. EFFEXOR [Concomitant]
     Dosage: 37.5 mg, UNK
  11. XALATAN [Concomitant]
     Dosage: UNK UKN, UNK
  12. FORLAX [Concomitant]
     Dosage: UNK UKN, UNK
  13. KARDEGIC [Concomitant]
     Dosage: UNK UKN, UNK
  14. DAFALGAN [Concomitant]
     Dosage: 1 g, QID
     Dates: start: 20110615
  15. ELTEANS [Concomitant]
     Dosage: UNK UKN, BID
     Dates: start: 20120711
  16. FORTIMEL [Concomitant]
     Dosage: UNK UKN, TID
     Dates: start: 20120328
  17. MIANSERINE [Concomitant]
     Dosage: 10 mg, QD
  18. UVEDOSE [Concomitant]
     Dosage: 1 DF, QD for 3 weeks
  19. OXYCONTIN LP [Concomitant]
     Dosage: 10 mg, BID
  20. ATARAX                                  /CAN/ [Concomitant]
     Dosage: 0.5 DF, UNK

REACTIONS (7)
  - Cardiac failure [Fatal]
  - Atrial fibrillation [Fatal]
  - Dyspnoea [Fatal]
  - Fall [Unknown]
  - Femoral neck fracture [Unknown]
  - Acute pulmonary oedema [Unknown]
  - Asthenia [Unknown]
